FAERS Safety Report 8396145 (Version 2)
Quarter: 2012Q4

REPORT INFORMATION
  Report Type: 
  Country: US (occurrence: US)
  Receive Date: 20120208
  Receipt Date: 20121123
  Transmission Date: 20130627
  Serious: Yes (Other)
  Sender: FDA-Public Use
  Company Number: US-PFIZER INC-2012030755

PATIENT
  Sex: Female

DRUGS (5)
  1. ADRIAMYCIN [Suspect]
     Indication: NON-HODGKIN^S LYMPHOMA
     Dosage: UNK
     Route: 050
  2. VINCRISTINE [Suspect]
     Indication: NON-HODGKIN^S LYMPHOMA
     Dosage: UNK
     Route: 050
  3. CYTOXAN [Suspect]
     Indication: NON-HODGKIN^S LYMPHOMA
     Dosage: UNK
     Route: 050
  4. PREDNISONE [Suspect]
     Indication: NON-HODGKIN^S LYMPHOMA
     Dosage: UNK
     Route: 050
  5. RITUXIMAB [Suspect]
     Indication: NON-HODGKIN^S LYMPHOMA
     Dosage: UNK
     Route: 050

REACTIONS (1)
  - Foetal death [Unknown]
